FAERS Safety Report 18556991 (Version 1)
Quarter: 2020Q4

REPORT INFORMATION
  Report Type: Report from Study
  Country: PH (occurrence: PH)
  Receive Date: 20201129
  Receipt Date: 20201129
  Transmission Date: 20210114
  Serious: Yes (Hospitalization)
  Sender: FDA-Public Use
  Company Number: NVSC2020PH317371

PATIENT
  Age: 43 Year
  Sex: Male

DRUGS (6)
  1. ENTRESTO [Suspect]
     Active Substance: SACUBITRIL\VALSARTAN
     Indication: PRODUCT USED FOR UNKNOWN INDICATION
     Dosage: 0.5 DF, BID (49/51 MG)
     Route: 048
  2. ROSVIN [Concomitant]
     Indication: PRODUCT USED FOR UNKNOWN INDICATION
     Dosage: 5 MG, QD (AT BED TIME)
     Route: 065
  3. ISODIL [Concomitant]
     Indication: CHEST PAIN
     Dosage: 5 MG, PRN
     Route: 060
  4. XARELTO [Concomitant]
     Active Substance: RIVAROXABAN
     Indication: PRODUCT USED FOR UNKNOWN INDICATION
     Dosage: 20 MG, QD (AFTER LUNCH)
     Route: 065
  5. CONCORE [Concomitant]
     Indication: PRODUCT USED FOR UNKNOWN INDICATION
     Dosage: 2.5 MG, QD
     Route: 065
  6. TMZ MR [Concomitant]
     Indication: PRODUCT USED FOR UNKNOWN INDICATION
     Dosage: 35 MG, BID
     Route: 065

REACTIONS (3)
  - Hypertension [Unknown]
  - Wrong technique in product usage process [Unknown]
  - Cerebrovascular accident [Unknown]
